FAERS Safety Report 6072478-1 (Version None)
Quarter: 2009Q1

REPORT INFORMATION
  Report Type: 
  Country: None (occurrence: None)
  Receive Date: 20090210
  Receipt Date: 20090203
  Transmission Date: 20090719
  Serious: Yes (Hospitalization)
  Sender: FDA-Public Use
  Company Number: KR-ROCHE-612304

PATIENT
  Age: 45 Year
  Sex: Male

DRUGS (6)
  1. DIAZEPAM [Suspect]
     Dosage: OVERDOSE
     Route: 065
  2. DIAZEPAM [Suspect]
     Route: 065
  3. AMITRIPTYLINE HCL [Suspect]
     Dosage: OVERDOSE
     Route: 065
  4. AMITRIPTYLINE HCL [Suspect]
     Route: 065
  5. LORAZEPAM [Suspect]
     Dosage: OVERDOSE
     Route: 065
  6. LORAZEPAM [Suspect]
     Route: 065

REACTIONS (7)
  - ELECTROCARDIOGRAM ABNORMAL [None]
  - ELECTROCARDIOGRAM PR PROLONGATION [None]
  - ELECTROCARDIOGRAM QRS COMPLEX PROLONGED [None]
  - ELECTROCARDIOGRAM QT PROLONGED [None]
  - LOSS OF CONSCIOUSNESS [None]
  - OVERDOSE [None]
  - SUICIDE ATTEMPT [None]
